FAERS Safety Report 9526852 (Version 1)
Quarter: 2013Q1

REPORT INFORMATION
  Report Type: Spontaneous
  Country: US (occurrence: None)
  Receive Date: 20130311
  Receipt Date: 20130311
  Transmission Date: 20140127
  Serious: No
  Sender: FDA-Public Use
  Company Number: 1208USA011162

PATIENT
  Sex: Male

DRUGS (1)
  1. ZIOPTAN [Suspect]
     Indication: GLAUCOMA
     Dosage: ONE DROPS IN EACH EYE ONCE A DAY AT BEDTIME, OPHTHALMIC
     Route: 047
     Dates: start: 20120322

REACTIONS (3)
  - Product quality issue [None]
  - Drug dose omission [None]
  - No adverse event [None]
